FAERS Safety Report 9159710 (Version 2)
Quarter: 2013Q1

REPORT INFORMATION
  Report Type: Spontaneous
  Country: US (occurrence: US)
  Receive Date: 20130313
  Receipt Date: 20130320
  Transmission Date: 20140127
  Serious: No
  Sender: FDA-Public Use
  Company Number: US-PFIZER INC-2013081643

PATIENT
  Age: 67 Year
  Sex: Female
  Weight: 61.2 kg

DRUGS (1)
  1. ESTRING [Suspect]
     Indication: INADEQUATE LUBRICATION
     Dosage: 2 MG, UNK
     Route: 067
     Dates: start: 2013, end: 20130125

REACTIONS (3)
  - Product quality issue [Unknown]
  - Vaginal erosion [Unknown]
  - Vulvovaginal discomfort [Unknown]
